FAERS Safety Report 8313297-2 (Version None)
Quarter: 2012Q2

REPORT INFORMATION
  Report Type: 
  Country: None (occurrence: None)
  Receive Date: 20120425
  Receipt Date: 20120425
  Transmission Date: 20120825
  Serious: Yes (Other)
  Sender: FDA-Public Use
  Company Number: None

PATIENT
  Sex: Male
  Weight: 75.2971 kg

DRUGS (1)
  1. ESCITALOPRAM [Suspect]
     Indication: ANXIETY
     Dosage: 10MG 1 DAY ORAL
     Route: 048
     Dates: start: 20120322, end: 20120404

REACTIONS (8)
  - INSOMNIA [None]
  - SKIN WARM [None]
  - ANXIETY [None]
  - CHEST DISCOMFORT [None]
  - BLOOD PRESSURE INCREASED [None]
  - PRODUCT SUBSTITUTION ISSUE [None]
  - RESTLESSNESS [None]
  - INFLUENZA LIKE ILLNESS [None]
